FAERS Safety Report 6750520-X (Version None)
Quarter: 2010Q2

REPORT INFORMATION
  Report Type: 
  Country: None (occurrence: None)
  Receive Date: 20100528
  Receipt Date: 20100528
  Transmission Date: 20101027
  Serious: No
  Sender: FDA-Public Use
  Company Number: None

PATIENT
  Age: 87 Year
  Sex: Male
  Weight: 74.8435 kg

DRUGS (1)
  1. AFRIN [Suspect]
     Indication: NASAL CONGESTION
     Dosage: TWO SPRAYS IN EACH NOSTRIL ONCE NASAL
     Route: 045
     Dates: start: 20100527, end: 20100527

REACTIONS (2)
  - RHINORRHOEA [None]
  - SNEEZING [None]
